FAERS Safety Report 9026564 (Version 2)
Quarter: 2013Q1

REPORT INFORMATION
  Report Type: Spontaneous
  Country: CZ (occurrence: CZ)
  Receive Date: 20130123
  Receipt Date: 20130208
  Transmission Date: 20140127
  Serious: Yes (Hospitalization)
  Sender: FDA-Public Use
  Company Number: CZ-JNJFOC-20130107759

PATIENT
  Age: 39 None
  Sex: Female

DRUGS (1)
  1. TRINOVUM [Suspect]
     Indication: CONTRACEPTION
     Route: 048
     Dates: start: 201206

REACTIONS (5)
  - Derealisation [Recovering/Resolving]
  - Amnesia [Recovered/Resolved]
  - Headache [Recovering/Resolving]
  - Confusional state [Recovering/Resolving]
  - Panic disorder [Recovering/Resolving]
